FAERS Safety Report 6759683-3 (Version None)
Quarter: 2010Q2

REPORT INFORMATION
  Report Type: 
  Country: None (occurrence: None)
  Receive Date: 20100604
  Receipt Date: 20100525
  Transmission Date: 20101027
  Serious: Yes (Hospitalization, Other)
  Sender: FDA-Public Use
  Company Number: DSA_43203_2010

PATIENT
  Age: 89 Year
  Sex: Female

DRUGS (4)
  1. DILTIAZEM HYDROCHLORIDE [Suspect]
     Indication: CARDIOVASCULAR EVENT PROPHYLAXIS
     Dosage: 60 MG QD ORAL
     Route: 048
     Dates: start: 20060101, end: 20091201
  2. CORVASAL [Concomitant]
  3. VASTREL [Concomitant]
  4. PLAVIX [Concomitant]

REACTIONS (5)
  - ARRHYTHMIA [None]
  - ASTHENIA [None]
  - BRADYCARDIA [None]
  - MALAISE [None]
  - MYOCLONUS [None]
